FAERS Safety Report 16926287 (Version 1)
Quarter: 2019Q4

REPORT INFORMATION
  Report Type: Spontaneous
  Country: KR (occurrence: KR)
  Receive Date: 20191016
  Receipt Date: 20191016
  Transmission Date: 20200122
  Serious: Yes (Other)
  Sender: FDA-Public Use
  Company Number: KR-BAYER-2019-184739

PATIENT
  Age: 40 Year
  Sex: Male

DRUGS (3)
  1. CIPROURO [Suspect]
     Active Substance: CIPROFLOXACIN
     Indication: PROPHYLAXIS
     Dosage: 200 MG, BID
  2. METRONIDAZOLE. [Concomitant]
     Active Substance: METRONIDAZOLE
     Dosage: 500 MG, QD
  3. CEFOXITIN [Concomitant]
     Active Substance: CEFOXITIN SODIUM
     Dosage: 2 G, QD

REACTIONS (6)
  - Off label use [None]
  - Acute haemolytic transfusion reaction [Unknown]
  - Hyperbilirubinaemia [Unknown]
  - Hypotension [Unknown]
  - Haemolytic anaemia [Unknown]
  - Product use in unapproved indication [None]
